FAERS Safety Report 9915709 (Version 2)
Quarter: 2014Q1

REPORT INFORMATION
  Report Type: Spontaneous
  Country: IT (occurrence: None)
  Receive Date: 20140218
  Receipt Date: 20140226
  Transmission Date: 20141002
  Serious: Yes (Other)
  Sender: FDA-Public Use
  Company Number: 2176387

PATIENT
  Age: 73 Year
  Sex: Female
  Weight: 39 kg

DRUGS (2)
  1. PACLITAXEL [Suspect]
     Indication: OVARIAN CANCER
     Dosage: 230 MG MILLIGRAM(S), CYCLICAL, INTRAVENOUS DRIP
     Route: 041
     Dates: start: 20131231, end: 20140127
  2. CARBOPLATIN TEVA [Concomitant]

REACTIONS (3)
  - Oxygen saturation decreased [None]
  - Feeling hot [None]
  - Infusion related reaction [None]
